FAERS Safety Report 22215449 (Version 1)
Quarter: 2023Q2

REPORT INFORMATION
  Report Type: Spontaneous
  Country: IT (occurrence: IT)
  Receive Date: 20230416
  Receipt Date: 20230416
  Transmission Date: 20230721
  Serious: Yes (Other)
  Sender: FDA-Public Use
  Company Number: IT-GILEAD-2023-0622247

PATIENT
  Age: 35 Year
  Sex: Female

DRUGS (1)
  1. EMTRICITABINE\TENOFOVIR DISOPROXIL FUMARATE [Suspect]
     Active Substance: EMTRICITABINE\TENOFOVIR DISOPROXIL FUMARATE
     Indication: HIV infection
     Dosage: 1 DOSAGE FORM, ONCE A DAY
     Route: 048

REACTIONS (19)
  - Suicidal ideation [Unknown]
  - Middle insomnia [Unknown]
  - Depression [Unknown]
  - Somnolence [Unknown]
  - Pain [Unknown]
  - Disturbance in attention [Unknown]
  - Insomnia [Unknown]
  - Nightmare [Unknown]
  - Depressed mood [Unknown]
  - Decreased activity [Unknown]
  - Decreased interest [Unknown]
  - Gait disturbance [Unknown]
  - Initial insomnia [Unknown]
  - Fatigue [Unknown]
  - Mood altered [Unknown]
  - Hyperphagia [Unknown]
  - Nocturia [Unknown]
  - Decreased appetite [Unknown]
  - Product dose omission in error [Unknown]
